FAERS Safety Report 14986688 (Version 1)
Quarter: 2018Q2

REPORT INFORMATION
  Report Type: Spontaneous
  Country: ES (occurrence: ES)
  Receive Date: 20180608
  Receipt Date: 20180608
  Transmission Date: 20180711
  Serious: Yes (Hospitalization)
  Sender: FDA-Public Use
  Company Number: ES-SUN PHARMACEUTICAL INDUSTRIES LTD-2018RR-175145

PATIENT
  Age: 86 Year
  Sex: Female

DRUGS (7)
  1. BISOPROLOL AUROVITAS 2,5 MG COMPRIMIDOS RECUBIERTOS CON PELICULA EF... [Concomitant]
     Indication: PRODUCT USED FOR UNKNOWN INDICATION
     Dosage: 1-0-0 ()
     Route: 048
     Dates: start: 20090101
  2. HIDROFEROL 0,266 MG CAPSULAS BLANDAS ,10 CAPSULAS (BLISTER PVC/PVDC.. . [Suspect]
     Active Substance: CALCIFEDIOL
     Indication: PRODUCT USED FOR UNKNOWN INDICATION
     Dosage: 1 AL DIA (ERROR DE DOSIS)
     Route: 048
     Dates: start: 20170623, end: 20170701
  3. ATORVASTATINA (7400A) [Concomitant]
     Active Substance: ATORVASTATIN
     Indication: PRODUCT USED FOR UNKNOWN INDICATION
     Dosage: 40 MG DIA ()
     Route: 048
     Dates: start: 20090101
  4. ADIRO 100 MG COMPRIMIDOS GASTRORRESISTENTES EFG , 30 COMPRIMIDOS [Concomitant]
     Active Substance: ASPIRIN
     Indication: PRODUCT USED FOR UNKNOWN INDICATION
     Dosage: 0-1-0 ()
     Route: 048
     Dates: start: 20090101
  5. TRAMADOL. [Suspect]
     Active Substance: TRAMADOL
     Indication: PRODUCT USED FOR UNKNOWN INDICATION
     Dosage: 50MG, 1-1-1
     Route: 048
     Dates: start: 20170623, end: 20170701
  6. IXIA PLUS 40 MG/12,5 MG COMPRIMIDOS RECUBIERTOS CON PELICULA, 28 CO... [Concomitant]
     Indication: PRODUCT USED FOR UNKNOWN INDICATION
     Dosage: 1-0-0 ()
     Route: 048
     Dates: start: 20090101
  7. EUTIROX  75 MICROGRAMOS COMPRIMIDOS , 100 COMPRIMIDOS [Concomitant]
     Indication: PRODUCT USED FOR UNKNOWN INDICATION
     Dosage: 1 CP DIA ()
     Route: 048
     Dates: start: 20090101

REACTIONS (6)
  - Hypomagnesaemia [Recovered/Resolved with Sequelae]
  - Confusional state [Recovered/Resolved]
  - Incorrect dose administered [Recovered/Resolved with Sequelae]
  - Hypercalcaemia [Recovered/Resolved]
  - Acute kidney injury [Recovered/Resolved with Sequelae]
  - Hypokalaemia [Recovered/Resolved with Sequelae]

NARRATIVE: CASE EVENT DATE: 20170623
